FAERS Safety Report 8741821 (Version 2)
Quarter: 2012Q4

REPORT INFORMATION
  Report Type: 
  Country: NL (occurrence: NL)
  Receive Date: 20120824
  Receipt Date: 20121105
  Transmission Date: 20130627
  Serious: Yes (Other)
  Sender: FDA-Public Use
  Company Number: NL-AMGEN-NLDSP2012053288

PATIENT
  Age: 64 Year
  Sex: Female

DRUGS (6)
  1. ENBREL [Suspect]
     Indication: RHEUMATOID ARTHRITIS
     Dosage: 50 mg, weekly
     Dates: start: 20120613
  2. MTX                                /00113802/ [Concomitant]
     Dosage: UNK
  3. FOLATE [Concomitant]
     Dosage: UNK
  4. OMEPRAZOL                          /00661201/ [Concomitant]
     Dosage: UNK
  5. THYRAX                             /00068001/ [Concomitant]
     Dosage: UNK
  6. CALCIUM [Concomitant]
     Dosage: UNK

REACTIONS (3)
  - Dyspnoea [Recovered/Resolved]
  - Deafness transitory [Recovered/Resolved]
  - Injection site reaction [Recovered/Resolved]
